FAERS Safety Report 12181795 (Version 2)
Quarter: 2016Q1

REPORT INFORMATION
  Report Type: Spontaneous
  Country: BR (occurrence: BR)
  Receive Date: 20160315
  Receipt Date: 20160323
  Transmission Date: 20160526
  Serious: Yes (Other)
  Sender: FDA-Public Use
  Company Number: BR-PFIZER INC-2016150397

PATIENT
  Age: 98 Year
  Sex: Male

DRUGS (1)
  1. DALACIN C [Suspect]
     Active Substance: CLINDAMYCIN PHOSPHATE
     Dosage: 300 MG, UNK

REACTIONS (1)
  - Choking [Unknown]
